FAERS Safety Report 6670900-0 (Version None)
Quarter: 2010Q2

REPORT INFORMATION
  Report Type: 
  Country: None (occurrence: None)
  Receive Date: 20100407
  Receipt Date: 20100330
  Transmission Date: 20101027
  Serious: Yes (Death)
  Sender: FDA-Public Use
  Company Number: US-JNJCH-2003100396

PATIENT
  Age: 2 Month
  Sex: Male
  Weight: 5.4 kg

DRUGS (1)
  1. DIPHENHYDRAMINE HYDROCHLORIDE [Suspect]
     Dosage: TEXT:2.5 TABS (25 MG EACH) ONCE
     Route: 048

REACTIONS (2)
  - DRUG TOXICITY [None]
  - HOMICIDE [None]
